FAERS Safety Report 6479373 (Version 2)
Quarter: 2020Q3

REPORT INFORMATION
  Report Type: Spontaneous
  Country: US (occurrence: None)
  Receive Date: 20071120
  Receipt Date: 20071203
  Transmission Date: 20201104
  Serious: Yes (Hospitalization, Other)
  Sender: FDA-Public Use
  Company Number: 07-002237

PATIENT
  Age: 88 Year
  Sex: Female

DRUGS (1)
  1. METHENAMINE MANDELATE. [Suspect]
     Active Substance: METHENAMINE MANDELATE
     Indication: PROPHYLAXIS URINARY TRACT INFECTION
     Dosage: 1G, QD, ORAL
     Route: 048
     Dates: start: 20071024, end: 200711

REACTIONS (6)
  - Aspartate aminotransferase increased [None]
  - Liver injury [None]
  - Alanine aminotransferase increased [None]
  - Platelet count decreased [None]
  - Drug ineffective [None]
  - Condition aggravated [None]

NARRATIVE: CASE EVENT DATE: 200710
